FAERS Safety Report 14223614 (Version 1)
Quarter: 2017Q4

REPORT INFORMATION
  Report Type: Other
  Country: US (occurrence: US)
  Receive Date: 20171124
  Receipt Date: 20171124
  Transmission Date: 20180321
  Serious: No
  Sender: FDA-Public Use
  Company Number: US-GLENMARK PHARMACEUTICALS-2017GMK028868

PATIENT

DRUGS (1)
  1. VIORELE [Suspect]
     Active Substance: DESOGESTREL\ETHINYL ESTRADIOL
     Indication: MIGRAINE
     Dosage: UNK
     Route: 065

REACTIONS (4)
  - Migraine [Not Recovered/Not Resolved]
  - Drug ineffective for unapproved indication [Unknown]
  - Product substitution issue [Unknown]
  - Product quality issue [Unknown]
